FAERS Safety Report 7685231-X (Version None)
Quarter: 2011Q3

REPORT INFORMATION
  Report Type: 
  Country: None (occurrence: None)
  Receive Date: 20110816
  Receipt Date: 20110804
  Transmission Date: 20111222
  Serious: Yes (Other)
  Sender: FDA-Public Use
  Company Number: GB-ELI_LILLY_AND_COMPANY-GB201108001460

PATIENT
  Age: 71 Year
  Sex: Female
  Weight: 98 kg

DRUGS (10)
  1. AMLODIPINE [Concomitant]
  2. ATORVASTATIN [Concomitant]
  3. VALSARTAN [Concomitant]
  4. BUMETANIDE [Concomitant]
  5. HUMALOG [Concomitant]
  6. LANSOPRAZOLE [Concomitant]
  7. ASPIRIN [Concomitant]
  8. FENOFIBRATE [Concomitant]
  9. BYETTA [Suspect]
     Dosage: UNK, UNKNOWN
     Route: 058
     Dates: start: 20110415, end: 20110615
  10. SENNA [Concomitant]

REACTIONS (2)
  - OFF LABEL USE [None]
  - GLOMERULAR FILTRATION RATE DECREASED [None]
